FAERS Safety Report 5713136-X (Version None)
Quarter: 2008Q2

REPORT INFORMATION
  Report Type: 
  Country: None (occurrence: None)
  Receive Date: 20080418
  Receipt Date: 20080404
  Transmission Date: 20081010
  Serious: Yes (Other)
  Sender: FDA-Public Use
  Company Number: 2008EN000046

PATIENT
  Age: 10 Year
  Sex: Male

DRUGS (8)
  1. ABELCET [Suspect]
     Indication: DRUG USE FOR UNKNOWN INDICATION
     Dosage: 100 MG; QD; IV
     Route: 042
     Dates: start: 20080228, end: 20080309
  2. CLARITHROMYCIN [Concomitant]
  3. BACTRIM [Concomitant]
  4. OMEPRAZOLE [Concomitant]
  5. TRAMADOL HCL [Concomitant]
  6. KETOPROFEN [Concomitant]
  7. CLEMASTINE FUMARATE [Concomitant]
  8. PARACETAMOL [Concomitant]

REACTIONS (5)
  - CHILLS [None]
  - DYSPNOEA [None]
  - POOR PERIPHERAL CIRCULATION [None]
  - PYREXIA [None]
  - TREMOR [None]
